FAERS Safety Report 23939023 (Version 1)
Quarter: 2024Q2

REPORT INFORMATION
  Report Type: Spontaneous
  Country: ES (occurrence: ES)
  Receive Date: 20240604
  Receipt Date: 20240604
  Transmission Date: 20240716
  Serious: No
  Sender: FDA-Public Use
  Company Number: ES-WT-2024-EME-054445

PATIENT
  Sex: Male

DRUGS (1)
  1. AVODART [Suspect]
     Active Substance: DUTASTERIDE
     Indication: Hair disorder
     Dosage: 0.5 MG
     Route: 065

REACTIONS (1)
  - Product use in unapproved indication [Unknown]
